FAERS Safety Report 9726169 (Version 1)
Quarter: 2013Q4

REPORT INFORMATION
  Report Type: Spontaneous
  Country: US (occurrence: None)
  Receive Date: 20131202
  Receipt Date: 20131202
  Transmission Date: 20140711
  Serious: Yes (Life-Threatening)
  Sender: FDA-Public Use
  Company Number: None

PATIENT
  Age: 55 Year
  Sex: Male
  Weight: 120.5 kg

DRUGS (1)
  1. AMOXICILLIN [Suspect]
     Indication: CARDIAC OPERATION
     Route: 048
     Dates: start: 20131121, end: 20131122

REACTIONS (5)
  - Dyspnoea [None]
  - Tachycardia [None]
  - Pharyngeal oedema [None]
  - Hyperhidrosis [None]
  - Throat tightness [None]
